FAERS Safety Report 21354610 (Version 1)
Quarter: 2022Q3

REPORT INFORMATION
  Report Type: Spontaneous
  Country: US (occurrence: None)
  Receive Date: 20220919
  Receipt Date: 20220919
  Transmission Date: 20221027
  Serious: No
  Sender: FDA-Public Use
  Company Number: None

PATIENT
  Age: 54 Year
  Sex: Female
  Weight: 112.05 kg

DRUGS (9)
  1. NITROFURANTOIN MONO [Suspect]
     Active Substance: NITROFURANTOIN\NITROFURANTOIN MONOHYDRATE
     Indication: Urinary tract infection
     Dosage: FREQUENCY : TWICE A DAY;?
     Route: 048
  2. INSULIN LISPRO [Concomitant]
     Active Substance: INSULIN LISPRO
  3. HUMALOG [Concomitant]
     Active Substance: INSULIN LISPRO
  4. METFORMIN [Concomitant]
     Active Substance: METFORMIN HYDROCHLORIDE
  5. TRULICITY [Concomitant]
     Active Substance: DULAGLUTIDE
  6. LISINOPRIL [Concomitant]
     Active Substance: LISINOPRIL
  7. immitrex [Concomitant]
  8. VITAMIN C [Concomitant]
     Active Substance: ASCORBIC ACID
  9. becethin [Concomitant]

REACTIONS (7)
  - Migraine [None]
  - Eye pain [None]
  - Dyspnoea [None]
  - Kidney infection [None]
  - Abdominal pain upper [None]
  - Hypoaesthesia [None]
  - Feeling abnormal [None]

NARRATIVE: CASE EVENT DATE: 20220915
